FAERS Safety Report 5139860-8 (Version None)
Quarter: 2006Q4

REPORT INFORMATION
  Report Type: 
  Country: None (occurrence: None)
  Receive Date: 20061025
  Receipt Date: 20061025
  Transmission Date: 20070319
  Serious: Yes (Life-Threatening)
  Sender: FDA-Public Use
  Company Number: None

PATIENT
  Age: 45 Year
  Sex: Male
  Weight: 121.564 kg

DRUGS (16)
  1. ENOXAPARIN SODIUM [Suspect]
  2. CLOPIDOGREL [Suspect]
  3. ASPIRIN [Suspect]
     Dosage: 325 MG DAILY
  4. IBUPROFEN [Suspect]
     Dosage: TID
  5. HEPARIN [Suspect]
  6. IBUPROFEN [Concomitant]
  7. FUROSEMIDE [Concomitant]
  8. SIMVASTATIN [Concomitant]
  9. ALBUTEROL [Concomitant]
  10. QUETIAPINE [Concomitant]
  11. RANITIDINE [Concomitant]
  12. WARFARIN SODIUM [Concomitant]
  13. IPRATROPIUM BROMIDE [Concomitant]
  14. AMINOSALICYLIC ACID BUFFERED TAB [Concomitant]
  15. METOPROLOL TARTRATE [Concomitant]
  16. RISPERIDONE [Concomitant]

REACTIONS (5)
  - HAEMATEMESIS [None]
  - HYPOTENSION [None]
  - MALLORY-WEISS SYNDROME [None]
  - ULCER [None]
  - VENTRICULAR TACHYCARDIA [None]
